FAERS Safety Report 6654315-7 (Version None)
Quarter: 2010Q1

REPORT INFORMATION
  Report Type: 
  Country: None (occurrence: None)
  Receive Date: 20100326
  Receipt Date: 20100315
  Transmission Date: 20100710
  Serious: Yes (Other)
  Sender: FDA-Public Use
  Company Number: CA-JNJCH-2010006749

PATIENT
  Sex: Female

DRUGS (1)
  1. LUBRIDERM INTENSE DRY SKIN REPAIR BODY LOTION [Suspect]
     Indication: DRUG USE FOR UNKNOWN INDICATION
     Dosage: TEXT:UNKNOWN
     Route: 061

REACTIONS (10)
  - APPLICATION SITE ERYTHEMA [None]
  - APPLICATION SITE PAIN [None]
  - APPLICATION SITE PRURITUS [None]
  - APPLICATION SITE RASH [None]
  - APPLICATION SITE SWELLING [None]
  - APPLICATION SITE WARMTH [None]
  - CONDITION AGGRAVATED [None]
  - EYE SWELLING [None]
  - SKIN EXFOLIATION [None]
  - SWELLING FACE [None]
